FAERS Safety Report 15992564 (Version 3)
Quarter: 2019Q2

REPORT INFORMATION
  Report Type: Spontaneous
  Country: JP (occurrence: JP)
  Receive Date: 20190221
  Receipt Date: 20190401
  Transmission Date: 20190711
  Serious: Yes (Death, Life-Threatening, Hospitalization, Other)
  Sender: FDA-Public Use
  Company Number: JP-PFIZER INC-2018473302

PATIENT
  Age: 83 Year
  Sex: Male
  Weight: 52 kg

DRUGS (6)
  1. FILGRASTIM [Concomitant]
     Active Substance: FILGRASTIM
     Indication: NEUTROPENIA
     Dosage: 75 UG, UNK
     Route: 058
     Dates: start: 20170616, end: 20170617
  2. ZYTIGA [Suspect]
     Active Substance: ABIRATERONE ACETATE
     Dosage: 750 MG, 1X/DAY
     Dates: start: 20181024, end: 20181114
  3. NEUTROGIN [Concomitant]
     Active Substance: LENOGRASTIM
     Indication: NEUTROPENIA
     Dosage: 100 UG, UNK (A TOTAL OF FOURTEEN DOSES)
     Route: 058
     Dates: start: 20170731, end: 20180831
  4. DOCETAXEL 20MG/2ML HOSPIRA [Suspect]
     Active Substance: DOCETAXEL
     Indication: HORMONE-REFRACTORY PROSTATE CANCER
     Dosage: 55 MG, UNK (TOTAL OF 17 DOSES )
     Route: 041
     Dates: start: 20170608, end: 20180824
  5. ZYTIGA [Suspect]
     Active Substance: ABIRATERONE ACETATE
     Indication: HORMONE-REFRACTORY PROSTATE CANCER
     Dosage: 500 MG, 1X/DAY
     Dates: start: 20181010, end: 20181023
  6. RANMARK [Concomitant]
     Active Substance: DENOSUMAB
     Indication: METASTASES TO BONE
     Dosage: 120 MG, SINGLE
     Route: 058
     Dates: start: 20181024, end: 20181024

REACTIONS (2)
  - Influenza [Unknown]
  - Interstitial lung disease [Fatal]

NARRATIVE: CASE EVENT DATE: 201810
